FAERS Safety Report 20059405 (Version 2)
Quarter: 2021Q4

REPORT INFORMATION
  Report Type: Spontaneous
  Country: NL (occurrence: NL)
  Receive Date: 20211111
  Receipt Date: 20211122
  Transmission Date: 20220303
  Serious: Yes (Life-Threatening, Hospitalization)
  Sender: FDA-Public Use
  Company Number: NL-TEVA-2021-NL-1974878

PATIENT
  Age: 74 Year
  Sex: Male

DRUGS (8)
  1. HYDROCORTISONE [Suspect]
     Active Substance: HYDROCORTISONE
     Indication: Drug hypersensitivity
     Route: 042
  2. XARELTO [Suspect]
     Active Substance: RIVAROXABAN
     Indication: Atrial fibrillation
     Route: 048
  3. CLEMASTINE [Suspect]
     Active Substance: CLEMASTINE
     Indication: Drug hypersensitivity
     Route: 042
  4. EPINEPHRINE [Suspect]
     Active Substance: EPINEPHRINE
     Indication: Drug hypersensitivity
     Route: 030
  5. AMOXICILLIN\CLAVULANIC ACID [Concomitant]
     Active Substance: AMOXICILLIN\CLAVULANIC ACID
     Indication: Pneumonia aspiration
     Route: 065
  6. AMLODIPINE [Concomitant]
     Active Substance: AMLODIPINE BESYLATE
     Indication: Hypertension
     Route: 065
  7. PIRITRAMIDE [Concomitant]
     Active Substance: PIRITRAMIDE
     Indication: Pain
     Route: 065
  8. FENTANYL [Concomitant]
     Active Substance: FENTANYL
     Indication: Pain
     Route: 065

REACTIONS (5)
  - Drug hypersensitivity [Recovered/Resolved]
  - Acute respiratory failure [Recovered/Resolved]
  - Nervous system disorder [Recovered/Resolved]
  - Circulatory collapse [Recovered/Resolved]
  - Drug ineffective [Unknown]
